FAERS Safety Report 16616158 (Version 3)
Quarter: 2019Q3

REPORT INFORMATION
  Report Type: Report from Study
  Country: DE (occurrence: DE)
  Receive Date: 20190723
  Receipt Date: 20190819
  Transmission Date: 20191004
  Serious: Yes (Hospitalization, Other)
  Sender: FDA-Public Use
  Company Number: DE-BRISTOL-MYERS SQUIBB COMPANY-BMS-2019-007982

PATIENT
  Age: 66 Year
  Sex: Male

DRUGS (16)
  1. MELPERON [Concomitant]
     Active Substance: MELPERONE
     Indication: MALIGNANT NEOPLASM PROGRESSION
     Dosage: 10 MILLILITER
     Route: 065
     Dates: start: 201712
  2. DEXPANTHENOL. [Concomitant]
     Active Substance: DEXPANTHENOL
     Indication: MALIGNANT NEOPLASM PROGRESSION
     Dosage: UNK
     Route: 065
     Dates: start: 201806
  3. NIVOLUMAB [Suspect]
     Active Substance: NIVOLUMAB
     Indication: SQUAMOUS CELL CARCINOMA OF HEAD AND NECK
     Dosage: 240 MILLIGRAM, Q2WK
     Route: 042
     Dates: start: 20190125
  4. TROSPIUM CHLORIDE. [Concomitant]
     Active Substance: TROSPIUM CHLORIDE
     Indication: MALIGNANT NEOPLASM PROGRESSION
     Dosage: 30 MG, UNK
     Route: 065
     Dates: start: 201712
  5. BROTIZOLAM [Concomitant]
     Active Substance: BROTIZOLAM
     Indication: PROPHYLAXIS
     Dosage: 0.25 MILLIGRAM
     Route: 065
     Dates: start: 201806
  6. AMPHOTERICIN B. [Concomitant]
     Active Substance: AMPHOTERICIN B
     Indication: PROPHYLAXIS
     Dosage: UNK
     Route: 065
     Dates: start: 20190505, end: 20190702
  7. ESOMEPRAZOL                        /01479301/ [Concomitant]
     Active Substance: ESOMEPRAZOLE
     Indication: MALIGNANT NEOPLASM PROGRESSION
     Dosage: 40 MILLIGRAM
     Route: 065
     Dates: start: 201806
  8. TAMSULOSIN [Concomitant]
     Active Substance: TAMSULOSIN
     Indication: MALIGNANT NEOPLASM PROGRESSION
     Dosage: 0.4 MILLIGRAM
     Route: 065
     Dates: start: 201712
  9. METAMIZOL                          /06276701/ [Concomitant]
     Active Substance: METAMIZOLE
     Indication: PROPHYLAXIS
     Dosage: 1 DOSAGE FORM
     Route: 065
     Dates: start: 201806
  10. LORAZEPAM. [Concomitant]
     Active Substance: LORAZEPAM
     Indication: MALIGNANT NEOPLASM PROGRESSION
     Dosage: 1 MILLIGRAM
     Route: 065
     Dates: start: 201810
  11. COTRIM FORTE [Concomitant]
     Active Substance: SULFAMETHOXAZOLE\TRIMETHOPRIM
     Indication: PROPHYLAXIS
     Dosage: 960 MILLIGRAM
     Route: 065
     Dates: start: 20190505, end: 20190702
  12. RISPERIDON [Concomitant]
     Active Substance: RISPERIDONE
     Indication: MALIGNANT NEOPLASM PROGRESSION
     Dosage: 2 MG, UNK
     Route: 065
     Dates: start: 201712
  13. VALPROINSAEURE [Concomitant]
     Active Substance: VALPROIC ACID
     Indication: MALIGNANT NEOPLASM PROGRESSION
     Dosage: 1 DOSAGE FORM
     Route: 065
     Dates: start: 201712
  14. FRESUBIN                           /07459901/ [Concomitant]
     Active Substance: CARBOHYDRATES\FATTY ACIDS\MINERALS\PROTEIN\VITAMINS
     Indication: PROPHYLAXIS
     Dosage: 1 DOSAGE FORM
     Route: 065
     Dates: start: 201806
  15. BUPRENORPHINE. [Concomitant]
     Active Substance: BUPRENORPHINE
     Indication: MALIGNANT NEOPLASM PROGRESSION
     Dosage: 0.2 MILLIGRAM
     Route: 065
     Dates: start: 201806
  16. MINOCYCLINE                        /00232402/ [Concomitant]
     Indication: PROPHYLAXIS
     Dosage: UNK
     Route: 065
     Dates: start: 20181205

REACTIONS (4)
  - Malignant neoplasm progression [Not Recovered/Not Resolved]
  - Pneumonitis [Recovered/Resolved]
  - Lymphoedema [Recovered/Resolved]
  - Rash [Not Recovered/Not Resolved]

NARRATIVE: CASE EVENT DATE: 20190213
